FAERS Safety Report 7702060-9 (Version None)
Quarter: 2011Q3

REPORT INFORMATION
  Report Type: 
  Country: None (occurrence: None)
  Receive Date: 20110822
  Receipt Date: 20110817
  Transmission Date: 20111222
  Serious: Yes (Other)
  Sender: FDA-Public Use
  Company Number: JP-PFIZER INC-2011189754

PATIENT
  Age: 12 Month

DRUGS (1)
  1. SOLU-MEDROL [Suspect]
     Indication: ASTHMA
     Dosage: 0.012 G, 3X/DAY

REACTIONS (1)
  - HEPATOMEGALY [None]
